FAERS Safety Report 9460277 (Version 1)
Quarter: 2013Q3

REPORT INFORMATION
  Report Type: Spontaneous
  Country: US (occurrence: US)
  Receive Date: 20130815
  Receipt Date: 20130815
  Transmission Date: 20140515
  Serious: Yes (Other)
  Sender: FDA-Public Use
  Company Number: US-PFIZER INC-2013236621

PATIENT
  Sex: Female
  Weight: 72.56 kg

DRUGS (4)
  1. CELEBREX [Suspect]
     Indication: ARTHRALGIA
     Dosage: UNK
  2. LISINOPRIL [Suspect]
     Indication: BLOOD CHOLESTEROL ABNORMAL
     Dosage: 20/12.5MG, 1X/DAY
  3. ASPIRIN [Suspect]
     Indication: ANTICOAGULANT THERAPY
     Dosage: 81 MG, 1X/DAY
  4. ATACAND HCT [Suspect]
     Indication: HYPERTENSION
     Dosage: UNKNOWN DOSE(AFTER SPLITTING 32/12.5MG TABLET INTO HALF), 1X/DAY
     Route: 048
     Dates: start: 2013

REACTIONS (6)
  - Road traffic accident [Unknown]
  - Intentional drug misuse [Unknown]
  - Blood cholesterol increased [Unknown]
  - Constipation [Unknown]
  - Off label use [Unknown]
  - Drug ineffective [Unknown]
